FAERS Safety Report 8297285-0 (Version None)
Quarter: 2012Q1

REPORT INFORMATION
  Report Type: 
  Country: None (occurrence: None)
  Receive Date: 20120322
  Receipt Date: 20120103
  Transmission Date: 20120608
  Serious: Yes (Hospitalization)
  Sender: FDA-Public Use
  Company Number: UTC-014143

PATIENT
  Age: 77 Year
  Sex: Female
  Weight: 69.09 kg

DRUGS (4)
  1. DURETICS (DIURETICS) [Concomitant]
  2. ASPIRIN [Concomitant]
  3. TYVASO [Suspect]
     Indication: PULMONARY ARTERIAL HYPERTENSION
     Dosage: 18-54 MICROGRAMS, INHALATION
     Route: 055
     Dates: start: 20111004
  4. OXYGEN (OXYGEN) [Concomitant]

REACTIONS (1)
  - PULMONARY ARTERIAL HYPERTENSION [None]
